FAERS Safety Report 7535315-1 (Version None)
Quarter: 2011Q2

REPORT INFORMATION
  Report Type: 
  Country: None (occurrence: None)
  Receive Date: 20110609
  Receipt Date: 20080124
  Transmission Date: 20111010
  Serious: Yes (Death, Hospitalization, Other)
  Sender: FDA-Public Use
  Company Number: PHHY2008JP00937

PATIENT
  Sex: Female
  Weight: 60 kg

DRUGS (9)
  1. FEMARA [Suspect]
     Indication: BREAST CANCER
     Dosage: 2.5 MG, DAILY
     Route: 048
     Dates: start: 20061127, end: 20070416
  2. ZOLPIDEM [Concomitant]
     Indication: BREAST CANCER
     Dosage: 10 MG, DAILY
     Route: 048
     Dates: start: 20061127, end: 20070416
  3. VOGLIBOSE [Concomitant]
     Indication: BREAST CANCER
     Dosage: 0.6 MG, DAILY
     Route: 048
     Dates: start: 20061127, end: 20070416
  4. METFORMIN HCL [Concomitant]
     Indication: BREAST CANCER
     Dosage: 500 MG, DAILY
     Route: 048
     Dates: start: 20061127, end: 20070416
  5. FAMOTIDINE [Concomitant]
     Indication: BREAST CANCER
     Dosage: 40 MG, DAILY
     Route: 048
     Dates: start: 20061127, end: 20070416
  6. METHYCOBAL [Concomitant]
     Indication: BREAST CANCER
     Dosage: 1500 MG, DAILY
     Route: 048
     Dates: start: 20061127, end: 20070416
  7. CLARITIN [Concomitant]
     Indication: BREAST CANCER
     Dosage: 10 MG, DAILY
     Route: 048
     Dates: start: 20061127, end: 20070416
  8. NEUROTROPIN [Concomitant]
     Indication: BREAST CANCER
     Dosage: 16 IU, DAILY
     Route: 048
     Dates: start: 20061127, end: 20070416
  9. MITIGLINIDE [Concomitant]
     Indication: BREAST CANCER
     Dosage: 30 MG, DAILY
     Dates: start: 20061127, end: 20070416

REACTIONS (7)
  - NEOPLASM MALIGNANT [None]
  - HEPATIC FAILURE [None]
  - HAEMATEMESIS [None]
  - METASTASES TO BONE [None]
  - METASTASES TO LIVER [None]
  - COMA [None]
  - METASTASES TO LUNG [None]
